FAERS Safety Report 20156769 (Version 5)
Quarter: 2022Q1

REPORT INFORMATION
  Report Type: Report from Study
  Country: CA (occurrence: CA)
  Receive Date: 20211207
  Receipt Date: 20220329
  Transmission Date: 20220423
  Serious: Yes (Other)
  Sender: FDA-Public Use
  Company Number: CA-TAKEDA-2021TUS075200

PATIENT
  Age: 46 Year
  Sex: Female

DRUGS (9)
  1. VEDOLIZUMAB [Suspect]
     Active Substance: VEDOLIZUMAB
     Indication: Colitis ulcerative
     Dosage: 300 MILLIGRAM
     Route: 042
     Dates: start: 20211110
  2. VEDOLIZUMAB [Suspect]
     Active Substance: VEDOLIZUMAB
     Dosage: 300 MILLIGRAM
     Route: 042
  3. CORTENEMA [Concomitant]
     Active Substance: HYDROCORTISONE
     Dosage: UNK
  4. ASPIRIN [Concomitant]
     Active Substance: ASPIRIN
     Dosage: UNK
  5. SYNTHROID [Concomitant]
     Active Substance: LEVOTHYROXINE SODIUM
     Dosage: UNK
  6. IRON [Concomitant]
     Active Substance: IRON
     Dosage: UNK
     Route: 048
  7. IRON [Concomitant]
     Active Substance: IRON
     Dosage: UNK
     Route: 042
  8. Salofalk [Concomitant]
     Dosage: UNK
     Route: 042
  9. PREDNISONE [Concomitant]
     Active Substance: PREDNISONE
     Dosage: UNK

REACTIONS (4)
  - Stoma closure [Unknown]
  - Abscess [Unknown]
  - Diarrhoea [Unknown]
  - Therapeutic reaction time decreased [Unknown]

NARRATIVE: CASE EVENT DATE: 20211126
